FAERS Safety Report 9193049 (Version 2)
Quarter: 2013Q2

REPORT INFORMATION
  Report Type: Spontaneous
  Country: IT (occurrence: IT)
  Receive Date: 20130327
  Receipt Date: 20130422
  Transmission Date: 20140414
  Serious: Yes (Death, Life-Threatening, Hospitalization)
  Sender: FDA-Public Use
  Company Number: PHHY2013IT029134

PATIENT
  Age: 64 Year
  Sex: Male

DRUGS (3)
  1. AFINITOR [Suspect]
     Indication: RENAL CELL CARCINOMA
     Dosage: 10 MG, DAILY
     Route: 048
     Dates: start: 20130204, end: 20130303
  2. CORTICOSTEROIDS [Concomitant]
  3. ANTIBIOTICS [Concomitant]

REACTIONS (2)
  - Hyperpyrexia [Fatal]
  - Interstitial lung disease [Fatal]
